FAERS Safety Report 9789910 (Version 1)
Quarter: 2013Q4

REPORT INFORMATION
  Report Type: Spontaneous
  Country: US (occurrence: None)
  Receive Date: 20131227
  Receipt Date: 20131227
  Transmission Date: 20140711
  Serious: Yes (Death, Other)
  Sender: FDA-Public Use
  Company Number: 2013AP010729

PATIENT
  Age: 62 Year
  Sex: Male

DRUGS (7)
  1. PREDNISOLONE [Suspect]
     Indication: B-CELL LYMPHOMA
  2. CYCLOPHOSPHAMIDE [Suspect]
     Indication: B-CELL LYMPHOMA
  3. DOXORUBICIN [Suspect]
     Indication: B-CELL LYMPHOMA
  4. ONCOVIN [Suspect]
     Indication: B-CELL LYMPHOMA
  5. FLUDARABINE [Suspect]
     Indication: B-CELL LYMPHOMA
  6. NOVANTRONE [Suspect]
     Indication: B-CELL LYMPHOMA
  7. DEXAMETHASONE [Suspect]
     Indication: B-CELL LYMPHOMA

REACTIONS (2)
  - Myelodysplastic syndrome [None]
  - Acute myeloid leukaemia [None]
